FAERS Safety Report 9280206 (Version 1)
Quarter: 2013Q2

REPORT INFORMATION
  Report Type: Spontaneous
  Country: US (occurrence: None)
  Receive Date: 20130507
  Receipt Date: 20130507
  Transmission Date: 20140414
  Serious: No
  Sender: FDA-Public Use
  Company Number: None

PATIENT
  Age: 63 Year
  Sex: Female
  Weight: 54.43 kg

DRUGS (1)
  1. ESTRACE [Suspect]
     Indication: ATROPHIC VULVOVAGINITIS
     Dosage: SMALL AMOUNT NIGHTLY TO THE URETHRA
     Route: 067
     Dates: start: 20130919, end: 20131010

REACTIONS (2)
  - Flank pain [None]
  - Vaginal discharge [None]
